FAERS Safety Report 6135835-0 (Version None)
Quarter: 2009Q1

REPORT INFORMATION
  Report Type: 
  Country: None (occurrence: None)
  Receive Date: 20090327
  Receipt Date: 20090313
  Transmission Date: 20090719
  Serious: Yes (Other)
  Sender: FDA-Public Use
  Company Number: CA-GENENTECH-279818

PATIENT
  Sex: Female

DRUGS (2)
  1. XOLAIR [Suspect]
     Indication: ASTHMA
     Dosage: UNK
     Route: 065
     Dates: start: 20090225
  2. XOLAIR [Suspect]
     Indication: HYPERSENSITIVITY

REACTIONS (2)
  - LUNG INFECTION [None]
  - NASOPHARYNGITIS [None]
